FAERS Safety Report 9798947 (Version 1)
Quarter: 2014Q1

REPORT INFORMATION
  Report Type: Spontaneous
  Country: US (occurrence: None)
  Receive Date: 20140103
  Receipt Date: 20140103
  Transmission Date: 20141002
  Serious: Yes (Other)
  Sender: FDA-Public Use
  Company Number: None

PATIENT
  Age: 41 Year
  Sex: Female

DRUGS (1)
  1. GILDESS FE 1/20 [Suspect]
     Indication: CONTRACEPTION
     Route: 048

REACTIONS (1)
  - Metrorrhagia [None]
